FAERS Safety Report 23755303 (Version 2)
Quarter: 2024Q2

REPORT INFORMATION
  Report Type: Spontaneous
  Country: US (occurrence: US)
  Receive Date: 20240418
  Receipt Date: 20240424
  Transmission Date: 20240715
  Serious: Yes (Other)
  Sender: FDA-Public Use
  Company Number: US-MLMSERVICE-20240328-4918787-1

PATIENT
  Age: 29 Year
  Sex: Male

DRUGS (2)
  1. TESTOSTERONE [Suspect]
     Active Substance: TESTOSTERONE
     Indication: Muscle building therapy
     Dosage: UNK
     Route: 030
  2. STANOZOLOL [Suspect]
     Active Substance: STANOZOLOL
     Indication: Muscle building therapy
     Dosage: 3 DOSAGE FORM
     Route: 065

REACTIONS (5)
  - Pulmonary oedema [Unknown]
  - Myocarditis [Recovering/Resolving]
  - Ventricular hypokinesia [Recovering/Resolving]
  - Self-medication [Recovering/Resolving]
  - Drug abuse [Unknown]
